FAERS Safety Report 7341825-2 (Version None)
Quarter: 2011Q1

REPORT INFORMATION
  Report Type: 
  Country: None (occurrence: None)
  Receive Date: 20110309
  Receipt Date: 20110224
  Transmission Date: 20110831
  Serious: Yes (Hospitalization, Other)
  Sender: FDA-Public Use
  Company Number: CA-ELI_LILLY_AND_COMPANY-CA201102006838

PATIENT
  Sex: Female

DRUGS (11)
  1. ZYPREXA [Suspect]
     Indication: SCHIZOPHRENIA
     Dosage: 10 MG, EACH EVENING
     Route: 048
     Dates: end: 20000607
  2. ZYPREXA ZYDIS [Suspect]
     Indication: SCHIZOPHRENIA
     Dosage: 25 MG, EACH EVENING
     Route: 060
     Dates: start: 20060516
  3. PARIET [Concomitant]
     Dosage: 20 MG, DAILY (1/D)
  4. ZYPREXA [Suspect]
     Dosage: 5 MG, 2/D
     Dates: start: 20001017
  5. ZYPREXA ZYDIS [Suspect]
     Dosage: 20 MG, EACH EVENING
     Dates: start: 20070515
  6. LORAZEPAM [Concomitant]
     Dosage: 1 MG, EACH EVENING
     Route: 048
  7. BENZTROPINE MESYLATE [Concomitant]
     Dosage: 1 MG, 2/D
  8. ZYPREXA [Suspect]
     Dosage: 10 MG, UNK
     Dates: start: 20100326
  9. SYNTHROID [Concomitant]
     Dosage: 0.1 MG, DAILY (1/D)
  10. PAREXAT [Concomitant]
     Dosage: 20 MG, DAILY (1/D)
  11. ACETAMINOPHEN [Concomitant]
     Dosage: 1000 MG, 4/D

REACTIONS (9)
  - CARDIAC DISORDER [None]
  - DIABETES MELLITUS [None]
  - OVERDOSE [None]
  - BLOOD CHOLESTEROL INCREASED [None]
  - PULMONARY EMBOLISM [None]
  - HAEMORRHAGE [None]
  - WEIGHT INCREASED [None]
  - BLINDNESS [None]
  - BLOOD TRIGLYCERIDES INCREASED [None]
